FAERS Safety Report 9867443 (Version 2)
Quarter: 2014Q3

REPORT INFORMATION
  Report Type: Report from Study
  Country: AU (occurrence: AU)
  Receive Date: 20140204
  Receipt Date: 20140708
  Transmission Date: 20150326
  Serious: Yes (Other)
  Sender: FDA-Public Use
  Company Number: AU-SA-2014SA009439

PATIENT
  Age: 63 Year
  Sex: Female

DRUGS (4)
  1. METHOTREXATE [Concomitant]
     Active Substance: METHOTREXATE
  2. PREDNISONE. [Concomitant]
     Active Substance: PREDNISONE
  3. ARAVA [Suspect]
     Active Substance: LEFLUNOMIDE
     Indication: PRODUCT USED FOR UNKNOWN INDICATION
     Route: 048
     Dates: start: 20090722
  4. FOSAMAX [Concomitant]
     Active Substance: ALENDRONATE SODIUM

REACTIONS (6)
  - Cerebrovascular accident [Recovered/Resolved]
  - Memory impairment [Not Recovered/Not Resolved]
  - Hemiparesis [Recovered/Resolved]
  - Dysarthria [Recovered/Resolved]
  - Unevaluable event [Not Recovered/Not Resolved]
  - Cognitive disorder [Not Recovered/Not Resolved]

NARRATIVE: CASE EVENT DATE: 20130715
